FAERS Safety Report 5303820-4 (Version None)
Quarter: 2007Q1

REPORT INFORMATION
  Report Type: 
  Country: None (occurrence: None)
  Receive Date: 20070201
  Receipt Date: 20061130
  Transmission Date: 20070707
  Serious: No
  Sender: FDA-Public Use
  Company Number: 2006PV026103

PATIENT
  Age: 56 Year
  Sex: Female
  Weight: 86.1834 kg

DRUGS (6)
  1. BYETTA [Suspect]
     Indication: DIABETES MELLITUS NON-INSULIN-DEPENDENT
     Dosage: 10 MCG; BID; SC
     Route: 058
     Dates: start: 20060501
  2. LANTUS [Concomitant]
  3. ALTACE [Concomitant]
  4. LIPITOR [Concomitant]
  5. LASIX [Concomitant]
  6. LYRICA [Concomitant]

REACTIONS (1)
  - WEIGHT INCREASED [None]
